FAERS Safety Report 5200848-X (Version None)
Quarter: 2007Q1

REPORT INFORMATION
  Report Type: 
  Country: None (occurrence: None)
  Receive Date: 20070108
  Receipt Date: 20061228
  Transmission Date: 20070707
  Serious: Yes (Death, Life-Threatening)
  Sender: FDA-Public Use
  Company Number: DE-JNJFOC-20061206512

PATIENT
  Age: 52 Year
  Sex: Female

DRUGS (13)
  1. RISPERDAL [Suspect]
     Indication: SCHIZOAFFECTIVE DISORDER
     Route: 048
  2. TAVOR [Suspect]
     Indication: DRUG USE FOR UNKNOWN INDICATION
     Route: 048
     Dates: start: 20020507, end: 20030514
  3. TRIAMTERENE AND HYDROCHLOROTHIAZIDE [Suspect]
     Indication: DRUG USE FOR UNKNOWN INDICATION
     Route: 048
     Dates: start: 20030122, end: 20030514
  4. BELOC ZOK [Suspect]
     Indication: DRUG USE FOR UNKNOWN INDICATION
     Route: 048
     Dates: start: 20030227, end: 20030514
  5. MIRTAZAPINE [Suspect]
     Indication: DRUG USE FOR UNKNOWN INDICATION
     Route: 048
     Dates: start: 20030512, end: 20030514
  6. DICLOFENAC SODIUM [Suspect]
     Indication: DRUG USE FOR UNKNOWN INDICATION
     Route: 048
     Dates: start: 20030513, end: 20030514
  7. DAPOTUM [Suspect]
     Route: 048
  8. DAPOTUM [Suspect]
     Indication: DRUG USE FOR UNKNOWN INDICATION
     Route: 048
  9. NORVASC [Suspect]
     Indication: DRUG USE FOR UNKNOWN INDICATION
     Route: 048
     Dates: start: 20030314, end: 20030514
  10. XIMOVAN [Concomitant]
     Route: 048
     Dates: start: 20030409, end: 20030514
  11. KALIUM DURILES [Concomitant]
     Indication: DRUG USE FOR UNKNOWN INDICATION
     Route: 048
  12. AKINETON [Concomitant]
     Route: 048
     Dates: start: 20030509, end: 20030514
  13. PANTOZOL [Concomitant]
     Route: 048
     Dates: start: 20030513, end: 20030514

REACTIONS (6)
  - DEATH [None]
  - DEPRESSION [None]
  - HYPOAESTHESIA [None]
  - HYPOTENSION [None]
  - NECK PAIN [None]
  - SYNCOPE [None]
